FAERS Safety Report 5047232-X (Version None)
Quarter: 2006Q3

REPORT INFORMATION
  Report Type: 
  Country: None (occurrence: None)
  Receive Date: 20060703
  Receipt Date: 20060621
  Transmission Date: 20061208
  Serious: Yes (Other)
  Sender: FDA-Public Use
  Company Number: 163-20785-05100357

PATIENT
  Age: 57 Year
  Sex: Female

DRUGS (1)
  1. THALOMID [Suspect]
     Indication: MULTIPLE MYELOMA
     Dosage: 4 IN 1 D, ORAL
     Route: 048
     Dates: start: 20050929, end: 20060526

REACTIONS (1)
  - PREGNANCY TEST FALSE POSITIVE [None]
